FAERS Safety Report 9570600 (Version 1)
Quarter: 2013Q4

REPORT INFORMATION
  Report Type: Report from Study
  Country: CA (occurrence: CA)
  Receive Date: 20131001
  Receipt Date: 20131001
  Transmission Date: 20140711
  Serious: Yes (Other)
  Sender: FDA-Public Use
  Company Number: CA-ROCHE-1281877

PATIENT
  Age: 56 Year
  Sex: Male

DRUGS (12)
  1. RITUXAN [Suspect]
     Indication: POLYMYOSITIS
     Dosage: FREQUENCY: DAY 1, 15
     Route: 042
     Dates: start: 20130109
  2. ROSUVASTATIN [Suspect]
     Indication: BLOOD CHOLESTEROL INCREASED
     Route: 048
     Dates: start: 201307, end: 2013
  3. TYLENOL [Concomitant]
     Indication: PREMEDICATION
     Route: 048
     Dates: start: 20130109
  4. BENADRYL (CANADA) [Concomitant]
     Indication: PREMEDICATION
     Route: 048
     Dates: start: 20130109
  5. SOLU-MEDROL [Concomitant]
     Indication: PREMEDICATION
     Route: 042
     Dates: start: 20130109
  6. ALENDRONATE [Concomitant]
  7. AMLODIPINE [Concomitant]
  8. FLONASE [Concomitant]
  9. HYDROCHLOROTHIAZIDE [Concomitant]
  10. METFORMIN HYDROCHLORIDE [Concomitant]
     Route: 065
  11. VALACYCLOVIR [Concomitant]
     Route: 065
  12. PREDNISONE [Concomitant]

REACTIONS (2)
  - Blood cholesterol increased [Recovered/Resolved]
  - Polymyositis [Not Recovered/Not Resolved]
